FAERS Safety Report 17844512 (Version 3)
Quarter: 2022Q2

REPORT INFORMATION
  Report Type: Spontaneous
  Country: US (occurrence: US)
  Receive Date: 20200601
  Receipt Date: 20220511
  Transmission Date: 20220721
  Serious: No
  Sender: FDA-Public Use
  Company Number: US-UCBSA-2020003831

PATIENT
  Sex: Female

DRUGS (3)
  1. CIMZIA [Suspect]
     Active Substance: CERTOLIZUMAB PEGOL
     Indication: Colitis ulcerative
     Dosage: 400 MILLIGRAM, EV 4 WEEKS
     Route: 058
  2. CIMZIA [Suspect]
     Active Substance: CERTOLIZUMAB PEGOL
     Indication: Rheumatoid arthritis
     Dosage: UNK
     Route: 058
  3. AZATHIOPRINE [Concomitant]
     Active Substance: AZATHIOPRINE

REACTIONS (10)
  - Injection site discolouration [Recovered/Resolved]
  - Injection site pain [Unknown]
  - Injection site swelling [Unknown]
  - Hypersensitivity [Unknown]
  - Headache [Unknown]
  - Fracture [Unknown]
  - Arthralgia [Not Recovered/Not Resolved]
  - Bone pain [Not Recovered/Not Resolved]
  - Product dose omission issue [Unknown]
  - Product storage error [Unknown]
